FAERS Safety Report 4476032-4 (Version None)
Quarter: 2004Q4

REPORT INFORMATION
  Report Type: 
  Country: None (occurrence: None)
  Receive Date: 20041012
  Receipt Date: 20040930
  Transmission Date: 20050328
  Serious: Yes (Other)
  Sender: FDA-Public Use
  Company Number: 2004073734

PATIENT
  Age: 81 Year
  Sex: Male

DRUGS (5)
  1. NORVASC [Suspect]
     Indication: ILL-DEFINED DISORDER
     Dosage: 10 MG (10 MG, 1 IN 1 D), ORAL
     Route: 048
  2. CLOPIDOGREL BISULFATE [Concomitant]
  3. CLONIDINE [Concomitant]
  4. ATORVASTATIN (ATORVASTATIN) [Concomitant]
  5. METOPROLOL TARTRATE [Concomitant]

REACTIONS (2)
  - BLOOD PRESSURE SYSTOLIC INCREASED [None]
  - STENT PLACEMENT [None]
